FAERS Safety Report 4454410-7 (Version None)
Quarter: 2004Q3

REPORT INFORMATION
  Report Type: 
  Country: None (occurrence: None)
  Receive Date: 20040917
  Receipt Date: 20040917
  Transmission Date: 20050211
  Serious: Yes (Life-Threatening, Hospitalization)
  Sender: FDA-Public Use
  Company Number: None

PATIENT
  Age: 79 Year
  Sex: Male
  Weight: 97.5234 kg

DRUGS (1)
  1. TAXOL [Suspect]

REACTIONS (2)
  - POST PROCEDURAL COMPLICATION [None]
  - STENT OCCLUSION [None]
